FAERS Safety Report 8523512-8 (Version None)
Quarter: 2012Q3

REPORT INFORMATION
  Report Type: 
  Country: None (occurrence: None)
  Receive Date: 20120720
  Receipt Date: 20120712
  Transmission Date: 20120928
  Serious: Yes (Other)
  Sender: FDA-Public Use
  Company Number: CA-JNJFOC-20120706419

PATIENT
  Sex: Female

DRUGS (6)
  1. REMICADE [Suspect]
     Dosage: LAST INFLIXIMAB INFUSION
     Route: 042
     Dates: start: 20120530
  2. METHOTREXATE [Concomitant]
     Route: 065
  3. REMICADE [Suspect]
     Indication: ANKYLOSING SPONDYLITIS
     Route: 042
     Dates: start: 20030312
  4. TRIIODOTHYRONINE [Concomitant]
     Route: 065
  5. FOLIC ACID [Concomitant]
     Route: 065
  6. CELEBREX [Concomitant]
     Route: 065

REACTIONS (2)
  - CERVICAL VERTEBRAL FRACTURE [None]
  - FALL [None]
